FAERS Safety Report 4915935-0 (Version None)
Quarter: 2006Q1

REPORT INFORMATION
  Report Type: 
  Country: None (occurrence: None)
  Receive Date: 20060214
  Receipt Date: 20060125
  Transmission Date: 20060701
  Serious: Yes (Other)
  Sender: FDA-Public Use
  Company Number: US200601004579

PATIENT
  Age: 63 Year
  Sex: Female

DRUGS (3)
  1. FORTEO [Suspect]
     Indication: OSTEOPOROSIS
     Dates: start: 20030701, end: 20050701
  2. FORTEO PEN (FORTEO PEN) PEN, DISPOSABLE [Concomitant]
  3. XANAX /USA/ (ALPRAZOLAM) [Concomitant]

REACTIONS (9)
  - BLADDER PROLAPSE [None]
  - BONE DENSITY DECREASED [None]
  - EPISTAXIS [None]
  - FACIAL BONES FRACTURE [None]
  - FALL [None]
  - HYPOTONIA [None]
  - SKULL FRACTURE [None]
  - SUTURE RUPTURE [None]
  - UPPER LIMB FRACTURE [None]
